FAERS Safety Report 25551078 (Version 1)
Quarter: 2025Q3

REPORT INFORMATION
  Report Type: Spontaneous
  Country: US (occurrence: US)
  Receive Date: 20250714
  Receipt Date: 20250714
  Transmission Date: 20251021
  Serious: No
  Sender: INTRA-CELLULAR THERAPIES
  Company Number: US-INTRA-CELLULAR THERAPIES, INC.-2025ICT00490

PATIENT
  Age: 26 Year
  Sex: Male

DRUGS (3)
  1. CAPLYTA [Suspect]
     Active Substance: LUMATEPERONE
     Indication: Bipolar disorder
  2. CAPLYTA [Suspect]
     Active Substance: LUMATEPERONE
     Dates: end: 20250307
  3. CAPLYTA [Suspect]
     Active Substance: LUMATEPERONE
     Dates: start: 2025

REACTIONS (3)
  - Depression [Recovered/Resolved]
  - Unevaluable event [Recovered/Resolved]
  - Product dose omission issue [Recovered/Resolved]

NARRATIVE: CASE EVENT DATE: 20250301
